FAERS Safety Report 8756389 (Version 1)
Quarter: 2012Q4

REPORT INFORMATION
  Report Type: 
  Country: BR (occurrence: BR)
  Receive Date: 20120828
  Receipt Date: 20120828
  Transmission Date: 20130627
  Serious: Yes (Hospitalization)
  Sender: FDA-Public Use
  Company Number: BR-ACCORD-014487

PATIENT
  Age: 45 Year
  Sex: Female

DRUGS (5)
  1. PROMETHAZINE [Suspect]
  2. CLONAZEPAM [Suspect]
  3. QUETIAPINE FUMARATE [Suspect]
  4. OXCARBAZEPINE [Suspect]
  5. PHENOBARBITAL [Suspect]

REACTIONS (3)
  - Coma blister [Recovered/Resolved]
  - Intentional overdose [Unknown]
  - Rhabdomyolysis [Recovered/Resolved]
